FAERS Safety Report 5520528-0 (Version None)
Quarter: 2007Q4

REPORT INFORMATION
  Report Type: 
  Country: None (occurrence: None)
  Receive Date: 20071119
  Receipt Date: 20071106
  Transmission Date: 20080405
  Serious: Yes (Other)
  Sender: FDA-Public Use
  Company Number: US-PFIZER INC-2007094022

PATIENT

DRUGS (2)
  1. RELPAX [Suspect]
  2. NARCAN [Interacting]

REACTIONS (2)
  - DRUG INTERACTION [None]
  - ELECTROCARDIOGRAM ABNORMAL [None]
